FAERS Safety Report 10056362 (Version 2)
Quarter: 2014Q2

REPORT INFORMATION
  Report Type: Spontaneous
  Country: IT (occurrence: IT)
  Receive Date: 20140403
  Receipt Date: 20140411
  Transmission Date: 20141212
  Serious: Yes (Hospitalization)
  Sender: FDA-Public Use
  Company Number: IT-WATSON-2014-06348

PATIENT
  Age: 78 Year
  Sex: Female

DRUGS (4)
  1. LORAZEPAM (UNKNOWN) [Suspect]
     Indication: DRUG ABUSE
     Dosage: 20 MG, TOTAL
     Route: 048
     Dates: start: 20140312, end: 20140312
  2. OMEPRAZOLE (UNKNOWN) [Suspect]
     Indication: DRUG ABUSE
     Dosage: 140 MG, TOTAL
     Route: 048
     Dates: start: 20140312, end: 20140312
  3. MODURETIC [Concomitant]
     Indication: PRODUCT USED FOR UNKNOWN INDICATION
     Dosage: UNK
     Route: 065
  4. TRITTICO [Concomitant]
     Indication: PRODUCT USED FOR UNKNOWN INDICATION

REACTIONS (3)
  - Sopor [Recovering/Resolving]
  - Drug abuse [Recovering/Resolving]
  - Dizziness [Recovering/Resolving]
